FAERS Safety Report 7265713-5 (Version None)
Quarter: 2011Q1

REPORT INFORMATION
  Report Type: 
  Country: None (occurrence: None)
  Receive Date: 20110131
  Receipt Date: 20110121
  Transmission Date: 20110831
  Serious: Yes (Hospitalization)
  Sender: FDA-Public Use
  Company Number: JP-MERCK-1010USA02798

PATIENT
  Age: 64 Year
  Sex: Male

DRUGS (10)
  1. METFORMIN HYDROCHLORIDE [Concomitant]
     Indication: DIABETES MELLITUS
     Route: 048
     Dates: start: 20100601, end: 20100814
  2. ALACEPRIL [Concomitant]
     Route: 048
     Dates: start: 20100901
  3. METFORMIN HYDROCHLORIDE [Concomitant]
     Route: 048
     Dates: start: 20100901, end: 20101013
  4. JANUVIA [Suspect]
     Indication: DIABETES MELLITUS
     Route: 048
     Dates: start: 20100401, end: 20100814
  5. NITRENDIPINE [Concomitant]
     Route: 048
     Dates: start: 20100901
  6. GLICLAZIDE [Concomitant]
     Indication: DIABETES MELLITUS
     Route: 048
     Dates: start: 20100901, end: 20101013
  7. JANUVIA [Suspect]
     Route: 048
     Dates: start: 20100901, end: 20101013
  8. NATEGLINIDE [Concomitant]
     Indication: DIABETES MELLITUS
     Route: 048
     Dates: start: 20100601, end: 20100814
  9. ALACEPRIL [Concomitant]
     Indication: HYPERTENSION
     Route: 048
     Dates: start: 20100601, end: 20100814
  10. NITRENDIPINE [Concomitant]
     Indication: HYPERTENSION
     Route: 048
     Dates: start: 20100601, end: 20100814

REACTIONS (4)
  - ABDOMINAL PAIN UPPER [None]
  - HYPERGLYCAEMIA [None]
  - RASH [None]
  - CONSTIPATION [None]
